FAERS Safety Report 5217286-6 (Version None)
Quarter: 2007Q1

REPORT INFORMATION
  Report Type: 
  Country: None (occurrence: None)
  Receive Date: 20070124
  Receipt Date: 20051219
  Transmission Date: 20070707
  Serious: No
  Sender: FDA-Public Use
  Company Number: US-GLAXOSMITHKLINE-A0586272A

PATIENT
  Age: 71 Year
  Sex: Male

DRUGS (3)
  1. PAXIL [Suspect]
     Dosage: 25MG PER DAY
     Route: 048
     Dates: start: 20051213, end: 20051218
  2. LISINOPRIL [Concomitant]
  3. LIPITOR [Concomitant]

REACTIONS (4)
  - ANOREXIA [None]
  - DEPRESSION [None]
  - DIZZINESS [None]
  - FATIGUE [None]
